FAERS Safety Report 10218998 (Version 2)
Quarter: 2014Q2

REPORT INFORMATION
  Report Type: Report from Study
  Country: PL (occurrence: PL)
  Receive Date: 20140605
  Receipt Date: 20140605
  Transmission Date: 20141212
  Serious: Yes (Hospitalization)
  Sender: FDA-Public Use
  Company Number: PL-JNJFOC-20130610092

PATIENT
  Age: 76 Year
  Sex: Female

DRUGS (2)
  1. USTEKINUMAB [Suspect]
     Route: 058
  2. USTEKINUMAB [Suspect]
     Indication: RHEUMATOID ARTHRITIS
     Route: 058
     Dates: start: 20130227, end: 20130327

REACTIONS (1)
  - Transient ischaemic attack [Recovered/Resolved]
